FAERS Safety Report 7316020-3 (Version None)
Quarter: 2011Q1

REPORT INFORMATION
  Report Type: 
  Country: None (occurrence: None)
  Receive Date: 20110225
  Receipt Date: 20110217
  Transmission Date: 20110831
  Serious: Yes (Death, Hospitalization, Other)
  Sender: FDA-Public Use
  Company Number: PHEH2004US09658

PATIENT
  Sex: Female
  Weight: 83.9 kg

DRUGS (31)
  1. AREDIA [Suspect]
     Indication: BREAST CANCER RECURRENT
     Dosage: 90 MG, ONCE/SINGLE
     Route: 042
     Dates: start: 20010919, end: 20010919
  2. REGLAN [Concomitant]
     Dosage: 10 MG, 1 TO 2 TABS 30 MINS BEFORE MEALS
     Dates: start: 20050601
  3. TRAZODONE HCL [Concomitant]
     Dosage: 50 TO 200 MG DAILY AT BEDTIME
     Dates: start: 20050601
  4. XANAX [Concomitant]
     Dosage: UNK, PRN
  5. FEMARA [Concomitant]
     Indication: BREAST CANCER RECURRENT
     Dosage: 2.5 MG, QD
     Route: 048
     Dates: start: 20010918, end: 20031102
  6. 5-FU [Concomitant]
     Indication: BREAST CANCER
     Dosage: 1100 MG IV
     Route: 042
     Dates: start: 19941128, end: 19950320
  7. OXYCONTIN [Concomitant]
     Dosage: 40 MG, TID
     Dates: start: 20050601
  8. OXYCONTIN [Concomitant]
     Dosage: 10 MG, BID
  9. DEXAMETHASONE [Concomitant]
     Dosage: 8 MG, UNK
     Route: 048
     Dates: start: 20050614
  10. NEURONTIN [Concomitant]
     Dosage: 300 MG, QID
  11. CELEXA [Concomitant]
  12. ALLOPURINOL [Concomitant]
     Dosage: 300 MG BY MOUTH 3 DAILY
     Route: 048
     Dates: start: 20050601
  13. EFFEXOR [Concomitant]
     Dosage: 1 TAB DAILY
     Route: 048
     Dates: start: 20050601
  14. PROTONIX [Concomitant]
     Dosage: 40 MG, BID
     Dates: start: 20050601
  15. FLAGYL [Concomitant]
     Dosage: 500 MG, BID
     Dates: start: 20050601
  16. MIACALCIN [Concomitant]
     Dosage: 3.7 UNK, QD
  17. NASACORT [Concomitant]
  18. ZOMETA [Suspect]
     Indication: BREAST CANCER METASTATIC
     Dosage: 4 MG Q28D
     Route: 042
     Dates: start: 20011016, end: 20041006
  19. OXYCONTIN [Concomitant]
     Dosage: 20 MG, Q8H
     Route: 048
     Dates: start: 20050601
  20. ZYRTEC [Concomitant]
     Dosage: 10 MG, QD AS NEEDED
     Dates: start: 20050601
  21. FLAGYL [Concomitant]
     Dosage: 500 MG, BID
     Dates: start: 20050101
  22. MORPHINE SULFATE [Concomitant]
  23. MS CONTIN [Concomitant]
  24. ATIVAN [Concomitant]
     Indication: ANXIETY
     Dosage: 0.5 MG, BID
     Dates: start: 20050601
  25. CLONAZEPAM [Concomitant]
     Dosage: 0.5 MG, 1 OR 2 TABLETS EVERY 12HRS
  26. METRONIDAZOLE [Concomitant]
  27. AROMASIN [Concomitant]
     Indication: BREAST CANCER RECURRENT
     Dosage: 25 MG, QD
     Route: 048
     Dates: start: 20031103
  28. ZANTAC [Concomitant]
     Dosage: 150 MG, BID
     Route: 048
     Dates: start: 20050601
  29. ZANTAC [Concomitant]
     Dosage: 150 MG, QD
  30. OXYCONTIN [Concomitant]
     Indication: PAIN IN JAW
     Dosage: 20 MG, Q8H
     Route: 048
     Dates: start: 20040901
  31. DEXAMETHASONE [Concomitant]
     Indication: NERVE COMPRESSION
     Dosage: 4 MG, TID
     Dates: start: 20050601

REACTIONS (55)
  - JAW DISORDER [None]
  - BONE FORMATION INCREASED [None]
  - EAR PAIN [None]
  - ORAL CANDIDIASIS [None]
  - DEPRESSION [None]
  - LYMPHOMA [None]
  - TOOTH LOSS [None]
  - PULMONARY OEDEMA [None]
  - DYSPNOEA [None]
  - OEDEMA PERIPHERAL [None]
  - NEOPLASM MALIGNANT [None]
  - OSTEONECROSIS [None]
  - DENTURE WEARER [None]
  - PATHOLOGICAL FRACTURE [None]
  - WOUND [None]
  - PAIN IN JAW [None]
  - WEIGHT DECREASED [None]
  - GOUT [None]
  - TENDERNESS [None]
  - PYREXIA [None]
  - GINGIVAL SWELLING [None]
  - BONE LESION [None]
  - HYPERCHOLESTEROLAEMIA [None]
  - GAIT DISTURBANCE [None]
  - ASTHENIA [None]
  - LUNG NEOPLASM MALIGNANT [None]
  - OEDEMA MOUTH [None]
  - RADIATION INJURY [None]
  - NAIL DYSTROPHY [None]
  - NEUROPATHY PERIPHERAL [None]
  - PAIN [None]
  - GASTROOESOPHAGEAL REFLUX DISEASE [None]
  - COUGH [None]
  - PERIOSTITIS [None]
  - SWELLING FACE [None]
  - PSORIASIS [None]
  - METASTASES TO SPINE [None]
  - ATELECTASIS [None]
  - FIBROSIS [None]
  - SWELLING [None]
  - CULTURE POSITIVE [None]
  - ARTHROPATHY [None]
  - CHOLELITHIASIS [None]
  - SKIN ULCER [None]
  - DECUBITUS ULCER [None]
  - CONFUSIONAL STATE [None]
  - RASH [None]
  - OSTEONECROSIS OF JAW [None]
  - OSTEOMYELITIS [None]
  - BONE DISORDER [None]
  - ERYTHEMA [None]
  - CELLULITIS [None]
  - SINUSITIS [None]
  - DRUG DEPENDENCE [None]
  - ARRHYTHMIA [None]
